FAERS Safety Report 11115153 (Version 1)
Quarter: 2015Q2

REPORT INFORMATION
  Report Type: Spontaneous
  Country: US (occurrence: None)
  Receive Date: 20150507
  Receipt Date: 20150507
  Transmission Date: 20150821
  Serious: Yes (Hospitalization)
  Sender: FDA-Public Use
  Company Number: 2014AP001424

PATIENT
  Age: 18 Year
  Sex: Female

DRUGS (2)
  1. LAMOTRIGINE (LAMOTRIGINE) TABLET [Suspect]
     Active Substance: LAMOTRIGINE
  2. PENCILLLIN /00001805/ (PHENOXYMETHYLPENICILLIN BENZATHINE) UNKNOWN [Concomitant]

REACTIONS (1)
  - Drug reaction with eosinophilia and systemic symptoms [None]
